FAERS Safety Report 9881116 (Version 1)
Quarter: 2014Q1

REPORT INFORMATION
  Report Type: Spontaneous
  Country: RU (occurrence: None)
  Receive Date: 20140205
  Receipt Date: 20140205
  Transmission Date: 20141002
  Serious: No
  Sender: FDA-Public Use
  Company Number: FK201400352

PATIENT
  Age: 65 Year
  Sex: Female
  Weight: 81 kg

DRUGS (6)
  1. PROPOFOL 1% MCT FRESENIUS (PROPOFOL) (PROPOFOL) [Suspect]
     Indication: INDUCTION OF ANAESTHESIA
     Dosage: 600MG , 1 IN 1D, INTRAVENOUS
     Route: 042
     Dates: start: 20130709, end: 20130709
  2. FENTANYL (FENTANYL) [Concomitant]
  3. DROPERIDOL [Concomitant]
  4. SUXAMETHONIUM [Concomitant]
  5. AZAMETHONIUM BROMIDE (AZAMETHONIUM BROMIDE) (AZAMETHONIUM BROMIDE) [Concomitant]
  6. PIPECURONIUM (PIPECURONIUM) (PIPCURONIUM) [Concomitant]

REACTIONS (7)
  - Multi-organ failure [None]
  - Cardiac arrest [None]
  - Coma [None]
  - Hepatic atrophy [None]
  - Procedural hypertension [None]
  - Cerebrovascular disorder [None]
  - Haemorrhagic stroke [None]
